FAERS Safety Report 8815421 (Version 1)
Quarter: 2012Q4

REPORT INFORMATION
  Report Type: 
  Country: US (occurrence: US)
  Receive Date: 20120928
  Receipt Date: 20120928
  Transmission Date: 20130627
  Serious: Yes (Hospitalization)
  Sender: FDA-Public Use
  Company Number: US-ASTRAZENECA-2012SE74339

PATIENT
  Age: 43 Year
  Sex: Female
  Weight: 108.4 kg

DRUGS (7)
  1. NEXIUM [Suspect]
     Indication: GASTROOESOPHAGEAL REFLUX DISEASE
     Route: 048
     Dates: start: 2010, end: 201208
  2. LISINOPRIL AND HYDROCHLOROTHIAZIDE [Suspect]
     Indication: HYPERTENSION
     Dosage: 20+25 MG, DAILY
     Route: 048
     Dates: start: 201208
  3. LYRICA [Concomitant]
     Indication: NEUROPATHY PERIPHERAL
     Dosage: 300 MG, TWO TIMES A DAY, FOR 4 YEARS
     Route: 048
  4. LORATADINE [Concomitant]
     Indication: SEASONAL ALLERGY
     Route: 048
  5. VERAPAMIL [Concomitant]
     Indication: HYPERTENSION
     Route: 048
  6. GLIPIZIDE [Concomitant]
     Indication: DIABETES MELLITUS
     Route: 048
     Dates: start: 201209
  7. ERYTHROCIN [Concomitant]
     Indication: GASTRIC DISORDER
     Dosage: TWO TIMES A DAY
     Route: 048
     Dates: start: 201209

REACTIONS (8)
  - Gastritis [Unknown]
  - Dehydration [Unknown]
  - Vomiting [Unknown]
  - Diarrhoea [Unknown]
  - Weight decreased [Unknown]
  - Malaise [Unknown]
  - Abdominal pain upper [Unknown]
  - Intentional drug misuse [Unknown]
